FAERS Safety Report 5659295-9 (Version None)
Quarter: 2008Q1

REPORT INFORMATION
  Report Type: 
  Country: None (occurrence: None)
  Receive Date: 20080311
  Receipt Date: 20070827
  Transmission Date: 20080703
  Serious: Yes (Other)
  Sender: FDA-Public Use
  Company Number: US-BAYER-200712152BCC

PATIENT
  Age: 42 Year
  Sex: Female
  Weight: 63 kg

DRUGS (2)
  1. ALEVE [Suspect]
     Indication: PHARYNGOLARYNGEAL PAIN
     Dosage: TOTAL DAILY DOSE: 880 MG  UNIT DOSE: 220 MG
     Route: 048
     Dates: start: 20070705
  2. LEVOTHYROXINE SODIUM [Concomitant]

REACTIONS (1)
  - BLOOD URINE PRESENT [None]
